FAERS Safety Report 18248461 (Version 5)
Quarter: 2022Q1

REPORT INFORMATION
  Report Type: Report from Study
  Country: CA (occurrence: CA)
  Receive Date: 20200909
  Receipt Date: 20220225
  Transmission Date: 20220423
  Serious: Yes (Hospitalization, Other)
  Sender: FDA-Public Use
  Company Number: CA-JNJFOC-20190611298

PATIENT
  Age: 13 Year
  Sex: Male
  Weight: 59 kg

DRUGS (11)
  1. REMICADE [Suspect]
     Active Substance: INFLIXIMAB
     Indication: Crohn^s disease
     Dosage: PRODUCT RECEIVED ON 10-OCT-2019.PRIOR TO SURGERY PROCEDURE
     Route: 042
     Dates: start: 20150327
  2. REMICADE [Suspect]
     Active Substance: INFLIXIMAB
     Route: 042
  3. REMICADE [Suspect]
     Active Substance: INFLIXIMAB
     Route: 042
  4. VITAMIN D NOS [Concomitant]
     Active Substance: VITAMIN D NOS
     Indication: Product used for unknown indication
     Route: 048
  5. ONDANSETRON [Concomitant]
     Active Substance: ONDANSETRON
     Indication: Product used for unknown indication
     Route: 048
  6. MAXOL [Concomitant]
     Indication: Migraine
     Route: 048
  7. LACTULOSE [Concomitant]
     Active Substance: LACTULOSE
     Indication: Product used for unknown indication
     Dosage: (PRN) AS NECESSARY
     Route: 048
  8. COLACE [Concomitant]
     Active Substance: DOCUSATE SODIUM
     Indication: Product used for unknown indication
     Dosage: 1-2 TABLETS AS NECESSARY (PRN)
     Route: 048
  9. ENTYVIO [Concomitant]
     Active Substance: VEDOLIZUMAB
     Indication: Product used for unknown indication
     Route: 042
  10. IMURAN                             /00001501/ [Concomitant]
     Indication: Product used for unknown indication
     Route: 048
  11. FERAMAX [Concomitant]
     Active Substance: IRON\POLYSACCHARIDES
     Indication: Product used for unknown indication
     Route: 065

REACTIONS (10)
  - Bone operation [Recovered/Resolved]
  - Raynaud^s phenomenon [Recovering/Resolving]
  - Lower respiratory tract infection [Recovered/Resolved]
  - Constipation [Recovered/Resolved]
  - Dizziness [Recovered/Resolved]
  - Fatigue [Not Recovered/Not Resolved]
  - Abdominal pain [Not Recovered/Not Resolved]
  - Lymphadenitis [Recovered/Resolved]
  - Incorrect drug administration rate [Unknown]
  - Off label use [Unknown]

NARRATIVE: CASE EVENT DATE: 20190101
